FAERS Safety Report 8062247-5 (Version None)
Quarter: 2012Q1

REPORT INFORMATION
  Report Type: 
  Country: None (occurrence: None)
  Receive Date: 20120118
  Receipt Date: 20111201
  Transmission Date: 20120608
  Serious: Yes (Other)
  Sender: FDA-Public Use
  Company Number: 2011IP000193

PATIENT
  Age: 64 Year
  Sex: Female

DRUGS (7)
  1. DUREZOL [Suspect]
     Indication: CATARACT OPERATION
     Dosage: OPH
     Route: 047
     Dates: start: 20111118, end: 20111125
  2. BRIMONIDINE TARTRATE [Concomitant]
  3. BROMDAY [Suspect]
     Indication: CATARACT OPERATION
     Dosage: 1 GTT; QD; OPH
     Route: 047
     Dates: start: 20111118, end: 20111125
  4. TIMOLOL MALEATE [Concomitant]
  5. PAROXETINE [Concomitant]
  6. VITAMINS NOS [Concomitant]
  7. TRAVATAN Z [Concomitant]

REACTIONS (5)
  - AMNIOTIC MEMBRANE GRAFT [None]
  - CORNEAL THINNING [None]
  - CORNEAL DISORDER [None]
  - ULCERATIVE KERATITIS [None]
  - GRAFT COMPLICATION [None]
